FAERS Safety Report 4377390-1 (Version None)
Quarter: 2004Q2

REPORT INFORMATION
  Report Type: 
  Country: None (occurrence: None)
  Receive Date: 20040614
  Receipt Date: 20040614
  Transmission Date: 20050107
  Serious: No
  Sender: FDA-Public Use
  Company Number: None

PATIENT
  Age: 39 Year
  Sex: Female

DRUGS (6)
  1. DIHYDROERGOTAMINE MESYLATE [Suspect]
     Dosage: 0.5 MG Q1 H X 2 DO IV, 1 MG Q8H X 3 DO IV
     Route: 042
     Dates: start: 20040609, end: 20040610
  2. SYTHROID [Concomitant]
  3. TORADOL [Concomitant]
  4. DILAUDID [Concomitant]
  5. VIOXX [Concomitant]
  6. ELAVIL [Concomitant]

REACTIONS (1)
  - VENTRICULAR TACHYCARDIA [None]
